FAERS Safety Report 6129008-5 (Version None)
Quarter: 2009Q1

REPORT INFORMATION
  Report Type: 
  Country: None (occurrence: None)
  Receive Date: 20090324
  Receipt Date: 20090313
  Transmission Date: 20090719
  Serious: Yes (Other)
  Sender: FDA-Public Use
  Company Number: PHHY2009VE10104

PATIENT
  Sex: Female

DRUGS (1)
  1. ACLASTA [Suspect]
     Dosage: UNK
     Dates: start: 20090312

REACTIONS (5)
  - ABASIA [None]
  - BACK PAIN [None]
  - HYPERTENSION [None]
  - HYPOTENSION [None]
  - PYREXIA [None]
